FAERS Safety Report 9057706 (Version 1)
Quarter: 2013Q1

REPORT INFORMATION
  Report Type: Spontaneous
  Country: DK (occurrence: None)
  Receive Date: 20130117
  Receipt Date: 20130117
  Transmission Date: 20140127
  Serious: Yes (Hospitalization)
  Sender: FDA-Public Use
  Company Number: 2013MA000229

PATIENT
  Age: 65 Year
  Sex: Male

DRUGS (3)
  1. CITALOPRAM HYDROBROMIDE TABLETS, 40 MG (PUREPAC) (CITALOPRAM HYDROBROMIDE) [Suspect]
     Indication: DEPRESSION
     Route: 048
     Dates: start: 201003, end: 201212
  2. CLOZAPINE [Concomitant]
  3. AMISULPRIDE [Concomitant]

REACTIONS (6)
  - Abdominal pain upper [None]
  - Malaise [None]
  - Fall [None]
  - Haematemesis [None]
  - Prescribed overdose [None]
  - Off label use [None]
